FAERS Safety Report 8988926 (Version 1)
Quarter: 2012Q4

REPORT INFORMATION
  Report Type: Spontaneous
  Country: US (occurrence: None)
  Receive Date: 20121224
  Receipt Date: 20121224
  Transmission Date: 20130627
  Serious: Yes (Other)
  Sender: FDA-Public Use
  Company Number: None

PATIENT
  Sex: Male

DRUGS (1)
  1. TARGRETIN [Suspect]
     Indication: CANCER
     Dosage: 75mg-8 capsules daily oral
     Route: 048
     Dates: start: 20120705, end: 20121220

REACTIONS (1)
  - Blister [None]
